FAERS Safety Report 20193630 (Version 2)
Quarter: 2022Q1

REPORT INFORMATION
  Report Type: Report from Study
  Country: US (occurrence: US)
  Receive Date: 20211216
  Receipt Date: 20220113
  Transmission Date: 20220423
  Serious: Yes (Hospitalization, Other)
  Sender: FDA-Public Use
  Company Number: US-NOVARTISPH-NVSC2021US284799

PATIENT
  Sex: Male

DRUGS (1)
  1. TABRECTA [Suspect]
     Active Substance: CAPMATINIB
     Indication: Lung neoplasm malignant
     Dosage: 400 MG, BID (VIA MOUTH)
     Route: 048
     Dates: start: 202111, end: 20211215

REACTIONS (8)
  - Dyspnoea [Unknown]
  - Chest pain [Unknown]
  - Arthralgia [Unknown]
  - Headache [Unknown]
  - Paraesthesia [Unknown]
  - Constipation [Unknown]
  - Nausea [Unknown]
  - Liver disorder [Unknown]
